FAERS Safety Report 17521157 (Version 1)
Quarter: 2020Q1

REPORT INFORMATION
  Report Type: Spontaneous
  Country: JP (occurrence: JP)
  Receive Date: 20200310
  Receipt Date: 20200310
  Transmission Date: 20200409
  Serious: Yes (Death, Other)
  Sender: FDA-Public Use
  Company Number: JP-PFIZER INC-2020098844

PATIENT
  Age: 66 Year
  Sex: Male

DRUGS (8)
  1. PREDNISONE. [Suspect]
     Active Substance: PREDNISONE
     Dosage: 90 MG, 1X/DAY (FOUR FURTHER COURSES OF CHOP)
     Route: 048
  2. PREDNISONE. [Suspect]
     Active Substance: PREDNISONE
     Indication: CUTANEOUS T-CELL LYMPHOMA
     Dosage: 90 MG, 1X/DAY
     Route: 048
  3. CYCLOPHOSPHAMIDE. [Suspect]
     Active Substance: CYCLOPHOSPHAMIDE
     Dosage: 1.0 G, UNK (FOUR FURTHER COURSES OF CHOP)
     Dates: start: 199802
  4. VINCRISTINE [Suspect]
     Active Substance: VINCRISTINE
     Dosage: 2 MG, UNK (FOUR FURTHER COURSES OF CHOP)
     Route: 042
  5. DOXORUBICIN HCL [Suspect]
     Active Substance: DOXORUBICIN HYDROCHLORIDE
     Indication: CUTANEOUS T-CELL LYMPHOMA
     Dosage: 75 MG, UNK (SYSTEMIC CHEMOTHERAPY)
     Dates: start: 199802
  6. DOXORUBICIN HCL [Suspect]
     Active Substance: DOXORUBICIN HYDROCHLORIDE
     Dosage: 75 MG, UNK (FOUR FURTHER COURSES OF CHOP)
     Dates: start: 199802
  7. CYCLOPHOSPHAMIDE. [Suspect]
     Active Substance: CYCLOPHOSPHAMIDE
     Indication: CUTANEOUS T-CELL LYMPHOMA
     Dosage: 1.0 G, UNK (SYSTEMIC CHEMOTHERAPY)
     Dates: start: 199802
  8. VINCRISTINE [Suspect]
     Active Substance: VINCRISTINE
     Indication: CUTANEOUS T-CELL LYMPHOMA
     Dosage: 2 MG, UNK (SYSTEMIC CHEMOTHERAPY)
     Route: 042

REACTIONS (4)
  - Bronchostenosis [Fatal]
  - Carcinogenicity [Fatal]
  - B-cell lymphoma [Unknown]
  - Second primary malignancy [Unknown]
